FAERS Safety Report 21874702 (Version 2)
Quarter: 2023Q1

REPORT INFORMATION
  Report Type: Spontaneous
  Country: US (occurrence: None)
  Receive Date: 20230117
  Receipt Date: 20230314
  Transmission Date: 20230418
  Serious: No
  Sender: FDA-Public Use
  Company Number: 2022A420899

PATIENT

DRUGS (1)
  1. BEVESPI AEROSPHERE [Suspect]
     Active Substance: FORMOTEROL FUMARATE\GLYCOPYRROLATE
     Indication: Chronic obstructive pulmonary disease
     Dosage: 9 MCG, 120 INHALATIONS, INHALER, 2 PUFFS TWO TIMES A DAY
     Route: 055

REACTIONS (4)
  - Chronic obstructive pulmonary disease [Unknown]
  - Incorrect dose administered by device [Unknown]
  - Off label use [Unknown]
  - Device delivery system issue [Unknown]
